FAERS Safety Report 13075894 (Version 1)
Quarter: 2016Q4

REPORT INFORMATION
  Report Type: Spontaneous
  Country: US (occurrence: US)
  Receive Date: 20161230
  Receipt Date: 20161230
  Transmission Date: 20170207
  Serious: No
  Sender: FDA-Public Use
  Company Number: None

PATIENT
  Age: 87 Year
  Sex: Female
  Weight: 41.73 kg

DRUGS (1)
  1. OLMESARTAN 20MG SUN [Suspect]
     Active Substance: OLMESARTAN
     Indication: BLOOD PRESSURE MEASUREMENT
     Dosage: TAKE ONE AND ONE-HALF TABLETS QD ORAL
     Route: 048
     Dates: start: 201612, end: 20161222

REACTIONS (4)
  - Asthenia [None]
  - Nausea [None]
  - Headache [None]
  - Dizziness [None]

NARRATIVE: CASE EVENT DATE: 20161221
